FAERS Safety Report 12286967 (Version 4)
Quarter: 2016Q2

REPORT INFORMATION
  Report Type: Spontaneous
  Country: US (occurrence: US)
  Receive Date: 20160420
  Receipt Date: 20160518
  Transmission Date: 20160815
  Serious: Yes (Other)
  Sender: FDA-Public Use
  Company Number: US-MDT-ADR-2016-00134

PATIENT
  Age: 61 Year
  Sex: Female

DRUGS (7)
  1. BUPIVACAINE. [Suspect]
     Active Substance: BUPIVACAINE
     Dosage: 0.8819MG/DAY
     Route: 037
  2. FENTANYL. [Suspect]
     Active Substance: FENTANYL
     Dosage: 2679 MCG/DAY
     Route: 037
  3. COMPOUNDED BACLOFEN [Suspect]
     Active Substance: BACLOFEN
     Dosage: 12.561MCG/DAY
     Route: 037
  4. UNKNOWN [Suspect]
     Active Substance: UNSPECIFIED INGREDIENT
     Route: 037
  5. BUPIVACAINE. [Suspect]
     Active Substance: BUPIVACAINE
     Dosage: 1.76 MG/DAY
     Route: 037
  6. FENTANYL. [Suspect]
     Active Substance: FENTANYL
     Dosage: 1336.2MCG/DAY
     Route: 037
  7. BACLOFEN. [Suspect]
     Active Substance: BACLOFEN
     Dosage: 25 MCG/DAY
     Route: 037

REACTIONS (9)
  - Incorrect route of drug administration [Recovered/Resolved]
  - Underdose [Recovered/Resolved]
  - Pain [Recovered/Resolved]
  - Dizziness [Unknown]
  - Overdose [Unknown]
  - Tremor [Unknown]
  - Abnormal behaviour [Unknown]
  - Drug withdrawal syndrome [Unknown]
  - Malaise [Unknown]

NARRATIVE: CASE EVENT DATE: 201604
